FAERS Safety Report 24764007 (Version 1)
Quarter: 2024Q4

REPORT INFORMATION
  Report Type: Spontaneous
  Country: FR (occurrence: FR)
  Receive Date: 20241223
  Receipt Date: 20241223
  Transmission Date: 20250114
  Serious: Yes (Congenital Anomaly, Other)
  Sender: AUROBINDO
  Company Number: FR-AFSSAPS-NC20221142

PATIENT
  Sex: Female

DRUGS (2)
  1. ISOTRETINOIN [Suspect]
     Active Substance: ISOTRETINOIN
     Indication: Acne
     Dosage: 20 MILLIGRAM, ONCE A DAY
     Route: 064
     Dates: start: 20210329, end: 202104
  2. ISOTRETINOIN [Suspect]
     Active Substance: ISOTRETINOIN
     Dosage: 30 MILLIGRAM, ONCE A DAY
     Route: 064
     Dates: end: 2021

REACTIONS (5)
  - Craniosynostosis [Not Recovered/Not Resolved]
  - Congenital musculoskeletal disorder [Not Recovered/Not Resolved]
  - Block vertebra [Not Recovered/Not Resolved]
  - Drug exposure before pregnancy [Recovered/Resolved with Sequelae]
  - Assisted delivery [Unknown]

NARRATIVE: CASE EVENT DATE: 20211213
